FAERS Safety Report 8231355-8 (Version None)
Quarter: 2012Q1

REPORT INFORMATION
  Report Type: 
  Country: None (occurrence: None)
  Receive Date: 20120323
  Receipt Date: 20120315
  Transmission Date: 20120608
  Serious: Yes (Other)
  Sender: FDA-Public Use
  Company Number: US-PFIZER INC-2012071889

PATIENT
  Sex: Female

DRUGS (3)
  1. METOPROLOL [Concomitant]
  2. EFFEXOR XR [Suspect]
     Dosage: 75 MG, 2X/DAY
     Route: 048
  3. BENICAR [Concomitant]

REACTIONS (2)
  - RENAL FAILURE CHRONIC [None]
  - MENTAL DISORDER [None]
